FAERS Safety Report 8864339 (Version 2)
Quarter: 2013Q3

REPORT INFORMATION
  Report Type: Spontaneous
  Country: US (occurrence: US)
  Receive Date: 20121024
  Receipt Date: 20130930
  Transmission Date: 20140515
  Serious: No
  Sender: FDA-Public Use
  Company Number: US-AMGEN-USASP2011066905

PATIENT
  Age: 78 Year
  Sex: Female
  Weight: 90.7 kg

DRUGS (11)
  1. ENBREL [Suspect]
     Indication: RHEUMATOID ARTHRITIS
     Dosage: 50 MG, QWK
     Route: 058
  2. HUMALOG MIX [Concomitant]
     Dosage: UNK  (75/25KWP)
  3. CENTRUM SILVER                     /01292501/ [Concomitant]
     Dosage: UNK
     Route: 048
  4. CALTRATE + SOY [Concomitant]
     Dosage: 600 UNK, UNK
     Route: 048
  5. LIPITOR [Concomitant]
     Dosage: 20 MG, UNK
     Route: 048
  6. OXYBUTYNIN [Concomitant]
     Dosage: 5 MG, UNK (ER)
     Route: 048
  7. VITAMIN C                          /00008001/ [Concomitant]
     Dosage: 500 MG, UNK
     Route: 048
  8. TOPROL [Concomitant]
     Dosage: 200 MG, UNK
     Route: 048
  9. BENICAR [Concomitant]
     Dosage: 40 MG, UNK
     Route: 048
  10. CALCIUM [Concomitant]
     Dosage: 500 UNK, UNK
     Route: 048
  11. CO Q 10 [Concomitant]
     Dosage: 100 MG, UNK
     Route: 048

REACTIONS (3)
  - Arthralgia [Not Recovered/Not Resolved]
  - Injection site erythema [Not Recovered/Not Resolved]
  - Injection site pruritus [Not Recovered/Not Resolved]
